FAERS Safety Report 10233170 (Version 1)
Quarter: 2014Q2

REPORT INFORMATION
  Report Type: Spontaneous
  Country: GB (occurrence: GB)
  Receive Date: 20140612
  Receipt Date: 20140612
  Transmission Date: 20141212
  Serious: Yes (Other)
  Sender: FDA-Public Use
  Company Number: GB-MYLANLABS-2014S1012927

PATIENT
  Age: 17 Year
  Sex: Female

DRUGS (16)
  1. CITALOPRAM [Suspect]
     Indication: POST-TRAUMATIC STRESS DISORDER
     Dosage: 40 MG, UNK
     Route: 065
  2. CITALOPRAM [Suspect]
     Indication: AUTISM SPECTRUM DISORDER
     Dosage: 40 MG, UNK
     Route: 065
  3. CITALOPRAM [Suspect]
     Indication: POST-TRAUMATIC STRESS DISORDER
  4. CITALOPRAM [Suspect]
     Indication: AUTISM SPECTRUM DISORDER
  5. DIAZEPAM [Suspect]
     Indication: POST-TRAUMATIC STRESS DISORDER
     Dosage: UNK, UNKNOWN
     Route: 065
  6. DIAZEPAM [Suspect]
     Indication: AUTISM SPECTRUM DISORDER
     Dosage: UNK, UNKNOWN
     Route: 065
  7. DIAZEPAM [Suspect]
     Indication: POST-TRAUMATIC STRESS DISORDER
  8. DIAZEPAM [Suspect]
     Indication: AUTISM SPECTRUM DISORDER
  9. OLANZAPINE [Suspect]
     Indication: AUTISM SPECTRUM DISORDER
     Dosage: 20 MG, UNK
     Route: 065
  10. OLANZAPINE [Suspect]
     Indication: POST-TRAUMATIC STRESS DISORDER
     Dosage: 20 MG, UNK
     Route: 065
  11. OLANZAPINE [Suspect]
     Indication: AUTISM SPECTRUM DISORDER
  12. OLANZAPINE [Suspect]
     Indication: POST-TRAUMATIC STRESS DISORDER
  13. VALIUM [Suspect]
     Indication: AUTISM SPECTRUM DISORDER
  14. VALIUM [Suspect]
     Indication: PRODUCT USED FOR UNKNOWN INDICATION
  15. VALIUM [Suspect]
     Indication: AUTISM SPECTRUM DISORDER
     Dosage: UNK, UNKNOWN
     Route: 065
  16. VALIUM [Suspect]
     Indication: PRODUCT USED FOR UNKNOWN INDICATION
     Dosage: UNK, UNKNOWN
     Route: 065

REACTIONS (3)
  - Depression [Unknown]
  - Psychotic disorder [Unknown]
  - Anxiety [Unknown]
